FAERS Safety Report 4338914-3 (Version None)
Quarter: 2004Q2

REPORT INFORMATION
  Report Type: 
  Country: None (occurrence: None)
  Receive Date: 20040409
  Receipt Date: 20040405
  Transmission Date: 20050107
  Serious: Yes (Other)
  Sender: FDA-Public Use
  Company Number: FR-SHR-04-022284

PATIENT
  Age: 46 Year
  Sex: Female
  Weight: 60 kg

DRUGS (2)
  1. MIRENA [Suspect]
     Indication: CONTRACEPTION
     Dosage: 20 MCG, CONT, INTRA-UTERINE
     Route: 015
     Dates: start: 19980101, end: 20040201
  2. MIRENA [Suspect]
     Indication: CONTRACEPTION
     Dosage: 20 MCG, CONT, INTRA-UTERINE
     Route: 015
     Dates: start: 20040201

REACTIONS (1)
  - CEREBROVASCULAR ACCIDENT [None]
